FAERS Safety Report 6429926-4 (Version None)
Quarter: 2009Q4

REPORT INFORMATION
  Report Type: 
  Country: None (occurrence: None)
  Receive Date: 20091103
  Receipt Date: 20091019
  Transmission Date: 20100525
  Serious: Yes (Hospitalization)
  Sender: FDA-Public Use
  Company Number: 02100-JPN-07-0142

PATIENT
  Age: 70 Year
  Sex: Male
  Weight: 68.2 kg

DRUGS (6)
  1. PLETAL [Suspect]
     Indication: CEREBRAL INFARCTION
     Dosage: 81 MG, QD, ORAL
     Route: 048
     Dates: start: 20040713, end: 20070706
  2. NIVADIL (NILVADIPINE) TABLET [Concomitant]
  3. NOVOLIN 30R (INSULIN INJECTION, BIPHASIC) INJECTION [Concomitant]
  4. MELBIN (METFORMIN HYDROCHLORIDE) TABLET [Concomitant]
  5. IDOMETHINE (INDOMETACIN) LIQUID [Concomitant]
  6. MICARDIS [Concomitant]

REACTIONS (6)
  - CEREBRAL INFARCTION [None]
  - CHOKING [None]
  - CONDITION AGGRAVATED [None]
  - DIABETES MELLITUS [None]
  - DRUG INEFFECTIVE [None]
  - DYSPHAGIA [None]
